FAERS Safety Report 22110050 (Version 1)
Quarter: 2023Q1

REPORT INFORMATION
  Report Type: Spontaneous
  Country: US (occurrence: US)
  Receive Date: 20230317
  Receipt Date: 20230317
  Transmission Date: 20230417
  Serious: No
  Sender: FDA-Public Use
  Company Number: US-BAYER-2023A031369

PATIENT
  Age: 74 Year
  Sex: Male

DRUGS (7)
  1. STIVARGA [Suspect]
     Active Substance: REGORAFENIB
     Indication: Colon cancer
     Dosage: UNK
     Dates: start: 202212
  2. STIVARGA [Suspect]
     Active Substance: REGORAFENIB
     Indication: Metastases to liver
     Dosage: 40 MG, QD
     Dates: start: 202301
  3. STIVARGA [Suspect]
     Active Substance: REGORAFENIB
     Indication: Colon cancer
     Dosage: 80 MG, QD
  4. STIVARGA [Suspect]
     Active Substance: REGORAFENIB
     Indication: Colon cancer
     Dosage: 120 MG, QD
  5. STIVARGA [Suspect]
     Active Substance: REGORAFENIB
     Indication: Colon cancer
     Dosage: 120 MG, QD
     Dates: start: 202302
  6. STIVARGA [Suspect]
     Active Substance: REGORAFENIB
     Indication: Colon cancer
     Dosage: 120 MG, QD
     Dates: start: 20230226
  7. MULTAQ [Concomitant]
     Active Substance: DRONEDARONE
     Indication: Heart rate increased
     Dosage: UNK

REACTIONS (1)
  - Heart rate increased [Recovered/Resolved]
